FAERS Safety Report 17725924 (Version 2)
Quarter: 2020Q3

REPORT INFORMATION
  Report Type: Report from Study
  Country: CA (occurrence: CA)
  Receive Date: 20200429
  Receipt Date: 20200723
  Transmission Date: 20201102
  Serious: Yes (Hospitalization)
  Sender: FDA-Public Use
  Company Number: PHHY2017CA021962

PATIENT
  Age: 86 Year
  Sex: Male

DRUGS (7)
  1. SANDOSTATIN LAR DEPOT [Suspect]
     Active Substance: OCTREOTIDE ACETATE
  2. METOPROLOL. [Suspect]
     Active Substance: METOPROLOL
     Indication: HEART RATE ABNORMAL
     Dosage: UNK
     Route: 048
     Dates: start: 2009
  3. METOPROLOL. [Suspect]
     Active Substance: METOPROLOL
     Indication: BLOOD PRESSURE ABNORMAL
  4. INSULIN [Concomitant]
     Active Substance: INSULIN NOS
     Indication: DIABETES MELLITUS
     Dosage: UNK
     Route: 058
  5. SANDOSTATIN LAR DEPOT [Suspect]
     Active Substance: OCTREOTIDE ACETATE
     Indication: CARCINOID TUMOUR
     Dosage: 30 MG, QMO (EVERY 4 WEEKS)
     Route: 030
     Dates: start: 20170131
  6. SANDOSTATIN LAR DEPOT [Suspect]
     Active Substance: OCTREOTIDE ACETATE
  7. FUCIDIN [Concomitant]
     Active Substance: FUSIDATE SODIUM
     Indication: PRODUCT USED FOR UNKNOWN INDICATION
     Dosage: UNK
     Route: 061

REACTIONS (25)
  - Arthralgia [Unknown]
  - Bronchitis [Unknown]
  - Pain in extremity [Unknown]
  - Hypokinesia [Unknown]
  - Faeces soft [Unknown]
  - Frequent bowel movements [Unknown]
  - Joint stiffness [Unknown]
  - Blood pressure diastolic decreased [Unknown]
  - Injection site pain [Unknown]
  - Diarrhoea [Unknown]
  - Sinusitis [Unknown]
  - Weight decreased [Unknown]
  - Heart rate decreased [Unknown]
  - Faeces discoloured [Unknown]
  - Varices oesophageal [Unknown]
  - Skin lesion [Unknown]
  - Volume blood decreased [Unknown]
  - Internal haemorrhage [Recovering/Resolving]
  - Melanocytic naevus [Unknown]
  - Post procedural complication [Unknown]
  - Blood iron decreased [Unknown]
  - Blood pressure increased [Unknown]
  - Cerebrovascular accident [Unknown]
  - Hemiparesis [Unknown]
  - Gait inability [Unknown]

NARRATIVE: CASE EVENT DATE: 20170131
